FAERS Safety Report 6428530-1 (Version None)
Quarter: 2009Q4

REPORT INFORMATION
  Report Type: 
  Country: None (occurrence: None)
  Receive Date: 20091104
  Receipt Date: 20091104
  Transmission Date: 20100525
  Serious: Yes (Hospitalization)
  Sender: FDA-Public Use
  Company Number: None

PATIENT
  Age: 81 Year

DRUGS (2)
  1. INSULIN [Suspect]
     Indication: DIABETES MELLITUS
     Dates: start: 20080902, end: 20090909
  2. GLYBURIDE [Suspect]
     Dosage: 10 MG EVERY DAY PO
     Route: 048
     Dates: start: 19991116, end: 20090909

REACTIONS (3)
  - ALCOHOLIC [None]
  - CONFUSIONAL STATE [None]
  - HYPOGLYCAEMIA [None]
